FAERS Safety Report 7901734-4 (Version None)
Quarter: 2011Q4

REPORT INFORMATION
  Report Type: 
  Country: None (occurrence: None)
  Receive Date: 20111108
  Receipt Date: 20111103
  Transmission Date: 20120403
  Serious: Yes (Other)
  Sender: FDA-Public Use
  Company Number: DE-JNJFOC-20111008161

PATIENT
  Sex: Male

DRUGS (4)
  1. NICORETTE [Suspect]
     Indication: SMOKING CESSATION THERAPY
     Route: 061
     Dates: start: 20111016, end: 20111001
  2. NICORETTE [Suspect]
     Route: 061
  3. NICORETTE [Suspect]
     Indication: SMOKING CESSATION THERAPY
     Route: 061
     Dates: start: 20110101, end: 20111016
  4. NICORETTE [Suspect]
     Route: 061

REACTIONS (3)
  - WITHDRAWAL SYNDROME [None]
  - FEELING ABNORMAL [None]
  - TREMOR [None]
